FAERS Safety Report 23148625 (Version 1)
Quarter: 2023Q4

REPORT INFORMATION
  Report Type: Spontaneous
  Country: JP (occurrence: JP)
  Receive Date: 20231106
  Receipt Date: 20231106
  Transmission Date: 20240110
  Serious: Yes (Death, Hospitalization)
  Sender: FDA-Public Use
  Company Number: JP-Eisai-202211903_LEN-RCC_P_1

PATIENT
  Age: 72 Year
  Sex: Male
  Weight: 56 kg

DRUGS (15)
  1. LENVIMA [Suspect]
     Active Substance: LENVATINIB
     Indication: Renal cell carcinoma
     Route: 048
     Dates: start: 20221130, end: 20221229
  2. KEYTRUDA [Suspect]
     Active Substance: PEMBROLIZUMAB
     Indication: Renal cell carcinoma
     Route: 041
     Dates: start: 20221130, end: 20221221
  3. PREDNISOLONE [Suspect]
     Active Substance: PREDNISOLONE
     Indication: Lung disorder
     Dates: start: 20221229, end: 20230101
  4. PREDNISOLONE [Suspect]
     Active Substance: PREDNISOLONE
     Dates: start: 20230105, end: 20230110
  5. PREDNISOLONE [Suspect]
     Active Substance: PREDNISOLONE
     Dates: start: 20230111, end: 20230119
  6. PREDNISOLONE [Suspect]
     Active Substance: PREDNISOLONE
     Dates: start: 20230120
  7. LINAGLIPTIN [Concomitant]
     Active Substance: LINAGLIPTIN
     Indication: Product used for unknown indication
     Route: 048
  8. ENTRESTO [Concomitant]
     Active Substance: SACUBITRIL\VALSARTAN
     Indication: Hypertension
     Route: 048
  9. SPIRONOLACTONE [Concomitant]
     Active Substance: SPIRONOLACTONE
     Indication: Product used for unknown indication
     Route: 048
  10. AZOSEMIDE [Concomitant]
     Active Substance: AZOSEMIDE
     Indication: Hypertension
     Route: 048
  11. BISOPROLOL FUMARATE [Concomitant]
     Active Substance: BISOPROLOL FUMARATE
     Indication: Product used for unknown indication
     Route: 048
  12. PITAVASTATIN [Concomitant]
     Active Substance: PITAVASTATIN
     Indication: Product used for unknown indication
     Route: 048
  13. POTASSIUM CHLORIDE [Concomitant]
     Active Substance: POTASSIUM CHLORIDE
     Indication: Product used for unknown indication
     Route: 048
  14. ICOSAPENT ETHYL [Concomitant]
     Active Substance: ICOSAPENT ETHYL
     Indication: Hypercoagulation
     Route: 048
     Dates: start: 20221213
  15. MIYA-BM [Concomitant]
     Active Substance: CLOSTRIDIUM BUTYRICUM SPORES STRAIN M-55
     Indication: Product used for unknown indication

REACTIONS (7)
  - Lung disorder [Recovering/Resolving]
  - Cardiac failure [Fatal]
  - Hypertension [Recovering/Resolving]
  - Diarrhoea [Unknown]
  - Dysphonia [Recovered/Resolved]
  - Hypothyroidism [Recovered/Resolved]
  - Colitis [Unknown]

NARRATIVE: CASE EVENT DATE: 20221130
